FAERS Safety Report 5736322-1 (Version None)
Quarter: 2008Q2

REPORT INFORMATION
  Report Type: 
  Country: None (occurrence: None)
  Receive Date: 20080513
  Receipt Date: 20080505
  Transmission Date: 20081010
  Serious: Yes (Hospitalization)
  Sender: FDA-Public Use
  Company Number: US-AMGEN-US254196

PATIENT
  Sex: Female
  Weight: 61.3 kg

DRUGS (3)
  1. ENBREL [Suspect]
     Indication: RHEUMATOID ARTHRITIS
     Route: 058
     Dates: start: 20060701
  2. INFLUENZA VACCINE [Concomitant]
     Dates: start: 20071001
  3. VITAMIN TAB [Concomitant]
     Route: 064

REACTIONS (6)
  - CONTUSION [None]
  - FEELING HOT [None]
  - JOINT SWELLING [None]
  - MUSCULOSKELETAL STIFFNESS [None]
  - PREMATURE LABOUR [None]
  - RHEUMATOID ARTHRITIS [None]
